FAERS Safety Report 11977626 (Version 2)
Quarter: 2016Q1

REPORT INFORMATION
  Report Type: Spontaneous
  Country: SK (occurrence: SK)
  Receive Date: 20160129
  Receipt Date: 20160209
  Transmission Date: 20160526
  Serious: Yes (Death, Hospitalization, Other)
  Sender: FDA-Public Use
  Company Number: SK-GILEAD-2016-0194853

PATIENT
  Age: 56 Year
  Sex: Female
  Weight: 49 kg

DRUGS (8)
  1. LAGOSA [Concomitant]
     Indication: HEPATITIS C
     Dosage: UNK
     Route: 048
     Dates: start: 20151208, end: 20160104
  2. FURON                              /00032601/ [Concomitant]
     Active Substance: FUROSEMIDE
     Indication: HEPATITIS G
     Dosage: UNK
     Dates: start: 20151208, end: 20160104
  3. HARVONI [Suspect]
     Active Substance: LEDIPASVIR\SOFOSBUVIR
     Indication: HEPATITIS C
     Dosage: 1 DF, UNK
     Route: 065
     Dates: start: 20151208, end: 20160104
  4. VEROSPIRON [Concomitant]
     Active Substance: SPIRONOLACTONE
     Indication: HEPATITIS G
     Dosage: UNK
     Route: 048
     Dates: start: 20151208, end: 20160104
  5. KREON                              /00014701/ [Concomitant]
     Active Substance: PANCRELIPASE
     Indication: PANCREATITIS CHRONIC
     Dosage: UNK
     Route: 048
     Dates: start: 20151208, end: 20160104
  6. COPEGUS [Concomitant]
     Active Substance: RIBAVIRIN
     Indication: HEPATITIS C
     Dosage: UNK
     Route: 048
     Dates: start: 20151208, end: 20160104
  7. FAMOSAN [Concomitant]
     Indication: CHRONIC GASTRITIS
     Dosage: UNK
     Route: 048
     Dates: start: 20151208, end: 20160104
  8. CARVEDIGAMMA [Concomitant]
     Indication: UPPER GASTROINTESTINAL HAEMORRHAGE
     Dosage: UNK
     Route: 048
     Dates: start: 20151208, end: 20160104

REACTIONS (1)
  - Upper gastrointestinal haemorrhage [Fatal]

NARRATIVE: CASE EVENT DATE: 20160104
